FAERS Safety Report 25021345 (Version 3)
Quarter: 2025Q1

REPORT INFORMATION
  Report Type: Report from Study
  Country: US (occurrence: US)
  Receive Date: 20250228
  Receipt Date: 20250312
  Transmission Date: 20250408
  Serious: Yes (Other)
  Sender: UCB
  Company Number: US-UCBSA-2024055684

PATIENT
  Age: 18 Year
  Sex: Female
  Weight: 62.6 kg

DRUGS (5)
  1. FINTEPLA [Suspect]
     Active Substance: FENFLURAMINE
     Indication: Lennox-Gastaut syndrome
     Dosage: UNK, 2X/DAY (BID)5.9 MILLILITER IN AM AND 6.5 MILLILITER AT NIGHT
     Route: 048
     Dates: start: 20240601
  2. FINTEPLA [Suspect]
     Active Substance: FENFLURAMINE
     Dosage: UNK, 2X/DAY (BID) 5.9 MILLILITER IN AM AND 6.5 MILLILITER AT NIGHT
     Route: 048
  3. FINTEPLA [Suspect]
     Active Substance: FENFLURAMINE
     Dosage: UNK, 2X/DAY (BID) 5 ML QAM 6.5 ML QPM
  4. FINTEPLA [Suspect]
     Active Substance: FENFLURAMINE
  5. FINTEPLA [Suspect]
     Active Substance: FENFLURAMINE
     Dosage: UNK, 2X/DAY (BID) (5 ML QAM 6.8 ML QPM)

REACTIONS (6)
  - Hysterectomy [Not Recovered/Not Resolved]
  - Aortic valve incompetence [Not Recovered/Not Resolved]
  - Abdominal discomfort [Not Recovered/Not Resolved]
  - Ear infection [Recovered/Resolved]
  - Hypertension [Not Recovered/Not Resolved]
  - Product use issue [Unknown]

NARRATIVE: CASE EVENT DATE: 20240629
